FAERS Safety Report 7000671-X (Version None)
Quarter: 2010Q3

REPORT INFORMATION
  Report Type: 
  Country: None (occurrence: None)
  Receive Date: 20100920
  Receipt Date: 20100526
  Transmission Date: 20110219
  Serious: No
  Sender: FDA-Public Use
  Company Number: US-ASTRAZENECA-2010SE24428

PATIENT
  Age: 27 Year
  Sex: Female

DRUGS (4)
  1. SEROQUEL [Suspect]
     Indication: BIPOLAR DISORDER
     Route: 048
  2. SEROQUEL [Suspect]
     Indication: MAJOR DEPRESSION
     Route: 048
  3. SEROQUEL [Suspect]
     Route: 048
  4. SEROQUEL [Suspect]
     Route: 048

REACTIONS (3)
  - BLOOD CHOLESTEROL INCREASED [None]
  - DRUG EXPOSURE DURING PREGNANCY [None]
  - HYPERSOMNIA [None]
